FAERS Safety Report 21189540 (Version 2)
Quarter: 2022Q3

REPORT INFORMATION
  Report Type: Spontaneous
  Country: CA (occurrence: CA)
  Receive Date: 20220809
  Receipt Date: 20220909
  Transmission Date: 20221027
  Serious: Yes (Other)
  Sender: FDA-Public Use
  Company Number: None

PATIENT
  Age: 13 Year
  Sex: Female
  Weight: 36 kg

DRUGS (11)
  1. MYCOPHENOLATE MOFETIL [Suspect]
     Active Substance: MYCOPHENOLATE MOFETIL
     Indication: Immunosuppression
     Dosage: 2 EVERY 1 DAYS
     Route: 065
  2. TACROLIMUS [Suspect]
     Active Substance: TACROLIMUS
     Indication: Immunosuppression
     Dosage: 2 EVERY 1 DAYS
     Route: 048
  3. THYMOCYTE IMMUNE GLOBULIN NOS [Suspect]
     Active Substance: THYMOCYTE IMMUNE GLOBULIN NOS
     Indication: Immunosuppression
     Route: 065
  4. CYTOGAM [Suspect]
     Active Substance: HUMAN CYTOMEGALOVIRUS IMMUNE GLOBULIN
     Indication: Immunosuppression
     Dosage: SOLUTION INTRAVENOUS
     Route: 042
  5. PREDNISONE [Suspect]
     Active Substance: PREDNISONE
     Indication: Immunosuppression
     Route: 065
  6. RITUXIMAB [Suspect]
     Active Substance: RITUXIMAB
     Indication: Immunosuppression
     Dosage: TOTAL, SOLUTION INTRAVENOUS
     Route: 042
  7. SOLIRIS [Suspect]
     Active Substance: ECULIZUMAB
     Indication: Transplant rejection
     Dosage: 300 MG/30ML
     Route: 042
  8. IMMUNOGLOBULINS [Concomitant]
     Dosage: SOLUTION INTRAVENOUS
     Route: 042
  9. UNSPECIFIED INGREDIENT [Concomitant]
     Active Substance: UNSPECIFIED INGREDIENT
  10. SOLIRIS [Suspect]
     Active Substance: ECULIZUMAB
     Indication: Transplant rejection
     Dosage: 300 MG/30ML, SOLUTION INTRAVENOUS
  11. SOLIRIS [Suspect]
     Active Substance: ECULIZUMAB
     Indication: Transplant rejection
     Dosage: 300 MG/30ML, SOLUTION INTRAVENOUS
     Route: 042

REACTIONS (3)
  - Polyomavirus-associated nephropathy [Unknown]
  - Renal transplant failure [Unknown]
  - Nephrectomy [Unknown]
